FAERS Safety Report 5364107-7 (Version None)
Quarter: 2007Q2

REPORT INFORMATION
  Report Type: 
  Country: None (occurrence: None)
  Receive Date: 20070620
  Receipt Date: 20070606
  Transmission Date: 20071010
  Serious: Yes (Other)
  Sender: FDA-Public Use
  Company Number: BE-SHR-BE-2007-021326

PATIENT

DRUGS (1)
  1. BETASERON [Suspect]
     Route: 058

REACTIONS (1)
  - BREAST CANCER [None]
